FAERS Safety Report 5983989-9 (Version None)
Quarter: 2008Q4

REPORT INFORMATION
  Report Type: 
  Country: None (occurrence: None)
  Receive Date: 20081208
  Receipt Date: 20081128
  Transmission Date: 20090506
  Serious: Yes (Death, Hospitalization)
  Sender: FDA-Public Use
  Company Number: DE-ROCHE-600787

PATIENT

DRUGS (1)
  1. XELODA [Suspect]
     Dosage: 3 CYCLES COMPLETED
     Route: 065

REACTIONS (1)
  - DEATH [None]
